FAERS Safety Report 5445199-3 (Version None)
Quarter: 2007Q3

REPORT INFORMATION
  Report Type: 
  Country: None (occurrence: None)
  Receive Date: 20070730
  Receipt Date: 20070420
  Transmission Date: 20080115
  Serious: Yes (Hospitalization)
  Sender: FDA-Public Use
  Company Number: 240313

PATIENT
  Age: 78 Year
  Sex: Female
  Weight: 61.2 kg

DRUGS (4)
  1. RITUXAN [Suspect]
     Indication: EXTRANODAL MARGINAL ZONE B-CELL LYMPHOMA (MALT TYPE)
  2. CYCLOPHOSPHAMIDE [Concomitant]
  3. VINCRISTINE [Concomitant]
  4. PREDNISONE TAB [Concomitant]

REACTIONS (4)
  - DISEASE PROGRESSION [None]
  - DYSPNOEA [None]
  - HYPOTENSION [None]
  - PYREXIA [None]
